FAERS Safety Report 24136171 (Version 1)
Quarter: 2024Q3

REPORT INFORMATION
  Report Type: Spontaneous
  Country: GB (occurrence: GB)
  Receive Date: 20240725
  Receipt Date: 20240725
  Transmission Date: 20241017
  Serious: Yes (Death)
  Sender: PFIZER
  Company Number: GB-PFIZER INC-202400222824

PATIENT
  Age: 40 Year
  Sex: Female

DRUGS (1)
  1. TUCATINIB [Suspect]
     Active Substance: TUCATINIB
     Indication: Metastases to central nervous system

REACTIONS (1)
  - Hepatic failure [Fatal]
